FAERS Safety Report 4282427-4 (Version None)
Quarter: 2004Q1

REPORT INFORMATION
  Report Type: 
  Country: None (occurrence: None)
  Receive Date: 20040129
  Receipt Date: 20040116
  Transmission Date: 20041129
  Serious: Yes (Other)
  Sender: FDA-Public Use
  Company Number: K200400073

PATIENT
  Age: 60 Year
  Sex: Female
  Weight: 129.3 kg

DRUGS (1)
  1. ALTACE [Suspect]
     Dosage: ORAL
     Route: 048

REACTIONS (1)
  - HEPATIC FAILURE [None]
